FAERS Safety Report 12666695 (Version 1)
Quarter: 2016Q3

REPORT INFORMATION
  Report Type: Spontaneous
  Country: US (occurrence: US)
  Receive Date: 20160819
  Receipt Date: 20160819
  Transmission Date: 20161109
  Serious: No
  Sender: FDA-Public Use
  Company Number: US-TEVA-680435ACC

PATIENT
  Age: 16 Year
  Sex: Female
  Weight: 72.64 kg

DRUGS (1)
  1. PLAN B ONE-STEP [Suspect]
     Active Substance: LEVONORGESTREL
     Indication: POST COITAL CONTRACEPTION
     Dates: start: 20160720, end: 20160720

REACTIONS (6)
  - Muscle spasms [Not Recovered/Not Resolved]
  - Prescription drug used without a prescription [Unknown]
  - Nausea [Recovered/Resolved]
  - Inappropriate schedule of drug administration [Unknown]
  - Intentional product misuse [Unknown]
  - Dizziness [Recovered/Resolved]

NARRATIVE: CASE EVENT DATE: 20160720
